FAERS Safety Report 22755111 (Version 2)
Quarter: 2024Q1

REPORT INFORMATION
  Report Type: Spontaneous
  Country: US (occurrence: US)
  Receive Date: 20230727
  Receipt Date: 20240308
  Transmission Date: 20240409
  Serious: Yes (Other)
  Sender: FDA-Public Use
  Company Number: US-ABBVIE-5343480

PATIENT
  Sex: Female

DRUGS (1)
  1. PREDNISOLONE ACETATE [Suspect]
     Active Substance: PREDNISOLONE ACETATE
     Indication: Product used for unknown indication
     Dosage: ONE DROP IN RIGHT EYE
     Route: 047
     Dates: start: 20230717

REACTIONS (9)
  - Blindness unilateral [Unknown]
  - Headache [Unknown]
  - Malaise [Unknown]
  - Visual impairment [Unknown]
  - Eye pain [Recovering/Resolving]
  - Visual impairment [Unknown]
  - Liquid product physical issue [Unknown]
  - Hearing aid user [Unknown]
  - Abnormal sensation in eye [Unknown]

NARRATIVE: CASE EVENT DATE: 20230717
